FAERS Safety Report 10558302 (Version 2)
Quarter: 2014Q4

REPORT INFORMATION
  Report Type: Report from Study
  Country: AR (occurrence: AR)
  Receive Date: 20141031
  Receipt Date: 20141119
  Transmission Date: 20150529
  Serious: Yes (Death, Hospitalization, Other)
  Sender: FDA-Public Use
  Company Number: PHHY2014AR142404

PATIENT
  Sex: Male

DRUGS (2)
  1. EXELON PATCH [Suspect]
     Active Substance: RIVASTIGMINE
     Indication: PRODUCT USED FOR UNKNOWN INDICATION
     Route: 062
  2. XOLAIR [Suspect]
     Active Substance: OMALIZUMAB
     Indication: PRODUCT USED FOR UNKNOWN INDICATION
     Route: 065

REACTIONS (7)
  - Lung disorder [Fatal]
  - Dementia Alzheimer^s type [Fatal]
  - Dyspnoea [Unknown]
  - Speech disorder [Fatal]
  - Wheezing [Unknown]
  - Disorientation [Fatal]
  - Malaise [Unknown]
